FAERS Safety Report 10393181 (Version 2)
Quarter: 2014Q3

REPORT INFORMATION
  Report Type: Report from Study
  Country: FR (occurrence: None)
  Receive Date: 20140815
  Receipt Date: 20140923
  Transmission Date: 20150326
  Serious: Yes (Hospitalization)
  Sender: FDA-Public Use
  Company Number: FR-20140274

PATIENT
  Age: 40 Year
  Sex: Female

DRUGS (1)
  1. DOTAREM [Suspect]
     Active Substance: GADOTERATE MEGLUMINE
     Indication: NUCLEAR MAGNETIC RESONANCE IMAGING
     Dosage: 15 ML (15 ML, 1 IN 1 D), INTRAVENOUS (NOT OTHERWISE SPECIFIED)
     Route: 042
     Dates: start: 20140731, end: 20140731

REACTIONS (5)
  - Tachycardia [None]
  - Laryngeal discomfort [None]
  - Type I hypersensitivity [None]
  - Angioedema [None]
  - Erythema [None]

NARRATIVE: CASE EVENT DATE: 20140731
